FAERS Safety Report 6874075-4 (Version None)
Quarter: 2010Q3

REPORT INFORMATION
  Report Type: 
  Country: None (occurrence: None)
  Receive Date: 20100723
  Receipt Date: 20090422
  Transmission Date: 20110219
  Serious: No
  Sender: FDA-Public Use
  Company Number: US-PFIZER INC-2009189252

PATIENT
  Sex: Female
  Weight: 99.773 kg

DRUGS (1)
  1. CHANTIX [Suspect]
     Indication: SMOKING CESSATION THERAPY
     Dosage: UNK

REACTIONS (6)
  - CHEST PAIN [None]
  - DYSPEPSIA [None]
  - HEAD DISCOMFORT [None]
  - INSOMNIA [None]
  - PALPITATIONS [None]
  - VOMITING [None]
